FAERS Safety Report 26132140 (Version 1)
Quarter: 2025Q4

REPORT INFORMATION
  Report Type: Spontaneous
  Country: CH (occurrence: CH)
  Receive Date: 20251208
  Receipt Date: 20251208
  Transmission Date: 20260117
  Serious: Yes (Hospitalization, Other)
  Sender: SANOFI AVENTIS
  Company Number: None

PATIENT
  Age: 87 Year
  Sex: Female
  Weight: 56.4 kg

DRUGS (17)
  1. RASBURICASE [Suspect]
     Active Substance: RASBURICASE
     Indication: Tumour lysis syndrome
     Dosage: UNK
     Dates: start: 20250926, end: 20250926
  2. RASBURICASE [Suspect]
     Active Substance: RASBURICASE
     Dosage: UNK
     Dates: start: 20251008, end: 20251008
  3. ALLOPURINOL [Suspect]
     Active Substance: ALLOPURINOL
     Dosage: UNK
     Dates: start: 20250927, end: 20251007
  4. POSACONAZOLE [Suspect]
     Active Substance: POSACONAZOLE
     Dosage: UNK
     Dates: start: 20251004
  5. HYDROXYUREA [Suspect]
     Active Substance: HYDROXYUREA
     Dosage: 1000 MG, Q12H
     Route: 048
     Dates: start: 20250926, end: 20250930
  6. VALTREX [Suspect]
     Active Substance: VALACYCLOVIR HYDROCHLORIDE
     Indication: Infection prophylaxis
     Dosage: 500 MG, Q12H
     Route: 048
     Dates: start: 20250926
  7. AZACITIDINE [Suspect]
     Active Substance: AZACITIDINE
     Dosage: 1 DF, QCY
     Dates: start: 20251003, end: 20251016
  8. VENETOCLAX [Suspect]
     Active Substance: VENETOCLAX
     Dosage: 1 DF, QCY
     Dates: start: 20251024, end: 202511
  9. DAFALGAN [Suspect]
     Active Substance: ACETAMINOPHEN
     Dosage: 500 MG, Q6H
     Route: 048
     Dates: end: 20251014
  10. DAFALGAN [Suspect]
     Active Substance: ACETAMINOPHEN
     Dosage: 500 MG, PRN (MAX. 4X500MG)
     Route: 048
     Dates: start: 20251020
  11. HERBALS\HOPS\VALERIAN [Suspect]
     Active Substance: HERBALS\HOPS\VALERIAN
     Dosage: UNK
     Route: 048
     Dates: start: 20250927, end: 20251103
  12. METFORMIN HYDROCHLORIDE [Concomitant]
     Active Substance: METFORMIN HYDROCHLORIDE
     Dosage: 500 MG, Q12H
     Route: 048
     Dates: end: 20250926
  13. METFORMIN HYDROCHLORIDE [Concomitant]
     Active Substance: METFORMIN HYDROCHLORIDE
     Dosage: 500 MG, Q12H
     Route: 048
     Dates: start: 20251101
  14. DAPAGLIFLOZIN [Concomitant]
     Active Substance: DAPAGLIFLOZIN
     Dosage: 10 MG, QD
  15. Sitagliptin mepha [Concomitant]
     Dosage: 100 MG, QD
  16. AZACITIDINE [Suspect]
     Active Substance: AZACITIDINE
  17. VENETOCLAX [Suspect]
     Active Substance: VENETOCLAX

REACTIONS (1)
  - Drug-induced liver injury [Recovering/Resolving]

NARRATIVE: CASE EVENT DATE: 20250927
